FAERS Safety Report 16948904 (Version 2)
Quarter: 2020Q4

REPORT INFORMATION
  Report Type: Report from Study
  Country: US (occurrence: US)
  Receive Date: 20191023
  Receipt Date: 20201106
  Transmission Date: 20210113
  Serious: Yes (Other)
  Sender: FDA-Public Use
  Company Number: NVSC2019US007349

PATIENT
  Age: 13 Year
  Sex: Male

DRUGS (3)
  1. CYCLOPHOSPHAMIDE. [Concomitant]
     Active Substance: CYCLOPHOSPHAMIDE
     Indication: CHEMOTHERAPY
     Route: 065
  2. KYMRIAH [Suspect]
     Active Substance: TISAGENLECLEUCEL
     Indication: B-CELL TYPE ACUTE LEUKAEMIA
     Dosage: UNK
     Route: 042
     Dates: start: 20190103
  3. FLUDARABINE [Concomitant]
     Active Substance: FLUDARABINE PHOSPHATE
     Indication: CHEMOTHERAPY
     Route: 065

REACTIONS (8)
  - Hypogammaglobulinaemia [Not Recovered/Not Resolved]
  - Pyrexia [Unknown]
  - Hypoxia [Unknown]
  - Lymphocyte count decreased [Unknown]
  - Cytokine release syndrome [Recovered/Resolved]
  - Hypotension [Unknown]
  - Treatment failure [Unknown]
  - Minimal residual disease [Unknown]
